FAERS Safety Report 4823579-4 (Version None)
Quarter: 2005Q4

REPORT INFORMATION
  Report Type: 
  Country: None (occurrence: None)
  Receive Date: 20051031
  Receipt Date: 20051025
  Transmission Date: 20060501
  Serious: Yes (Hospitalization)
  Sender: FDA-Public Use
  Company Number: 2005-00330

PATIENT
  Age: 74 Year
  Sex: Male

DRUGS (1)
  1. IMMUCYST [Suspect]
     Dosage: I.VES.
     Route: 043
     Dates: start: 20040101

REACTIONS (8)
  - BACTERIAL INFECTION [None]
  - BLADDER DISORDER [None]
  - CYSTITIS [None]
  - CYSTITIS ESCHERICHIA [None]
  - EPIDIDYMITIS [None]
  - ORCHITIS [None]
  - PROCEDURAL COMPLICATION [None]
  - TESTICULAR DISORDER [None]
